FAERS Safety Report 8154536-0 (Version None)
Quarter: 2012Q1

REPORT INFORMATION
  Report Type: 
  Country: None (occurrence: None)
  Receive Date: 20120221
  Receipt Date: 20120213
  Transmission Date: 20120608
  Serious: Yes (Other)
  Sender: FDA-Public Use
  Company Number: BR-ABBOTT-12P-020-0904422-00

PATIENT
  Sex: Male
  Weight: 79.6 kg

DRUGS (15)
  1. GLUCERNA [Suspect]
     Indication: MUSCLE MASS
     Dosage: 1 MEASURE SPOON PER DAY
  2. CHLORTHALIDONE [Concomitant]
     Indication: DIURETIC THERAPY
     Route: 048
  3. MULTI-VITAMINS [Concomitant]
     Indication: WEIGHT INCREASED
     Route: 048
     Dates: start: 20111101
  4. MULTI-VITAMINS [Concomitant]
     Indication: ASTHENIA
  5. SYNTHROID [Suspect]
     Dosage: FASTING
     Route: 048
  6. GLUCERNA [Suspect]
     Indication: WEIGHT INCREASED
     Dosage: 2 MEASURE SPOONS PER DAY
  7. CARDIZEM [Concomitant]
     Indication: CORONARY ARTERY DISEASE
     Route: 048
  8. AMLODIPINE BESYLATE [Concomitant]
     Indication: HYPERTENSION
     Route: 048
  9. SYNTHROID [Suspect]
     Indication: HYPERTHYROIDISM
     Dosage: FASTING
     Route: 048
  10. GLUCERNA [Suspect]
     Indication: ASTHENIA
  11. SUSTRATE [Concomitant]
     Indication: CORONARY ARTERY DISEASE
     Dosage: CHEWABLE
     Route: 048
  12. SYNTHROID [Suspect]
     Route: 048
  13. SYNTHROID [Suspect]
     Route: 048
  14. CHLORTHALIDONE [Concomitant]
     Indication: HYPERTENSION
  15. LISINOPRIL [Concomitant]
     Indication: HYPERTENSION
     Route: 048

REACTIONS (2)
  - SKIN CANCER [None]
  - UPPER EXTREMITY MASS [None]
